FAERS Safety Report 5260522-0 (Version None)
Quarter: 2007Q1

REPORT INFORMATION
  Report Type: 
  Country: None (occurrence: None)
  Receive Date: 20070309
  Receipt Date: 20061016
  Transmission Date: 20070707
  Serious: No
  Sender: FDA-Public Use
  Company Number: US-GLAXOSMITHKLINE-A0623475A

PATIENT
  Age: 60 Year

DRUGS (3)
  1. NICORETTE [Suspect]
     Indication: DRUG USE FOR UNKNOWN INDICATION
  2. COMMIT [Suspect]
     Indication: DRUG USE FOR UNKNOWN INDICATION
  3. BENICAR HCT [Concomitant]

REACTIONS (2)
  - DENTAL CARIES [None]
  - INTENTIONAL DRUG MISUSE [None]
